FAERS Safety Report 6223458-4 (Version None)
Quarter: 2009Q2

REPORT INFORMATION
  Report Type: 
  Country: None (occurrence: None)
  Receive Date: 20090610
  Receipt Date: 20090605
  Transmission Date: 20091009
  Serious: Yes (Hospitalization, Other)
  Sender: FDA-Public Use
  Company Number: WAES 0904USA01930

PATIENT
  Age: 73 Year
  Sex: Female

DRUGS (2)
  1. CAP VORINOSTAT UNK [Suspect]
     Indication: ACUTE MYELOID LEUKAEMIA
     Dosage: PO
     Route: 048
  2. GEMTUZUMAB OZOGAMICIN UNK [Suspect]

REACTIONS (6)
  - ASTHENIA [None]
  - ELECTROLYTE IMBALANCE [None]
  - EPISTAXIS [None]
  - NAUSEA [None]
  - PNEUMONIA [None]
  - VOMITING [None]
